FAERS Safety Report 12981527 (Version 3)
Quarter: 2017Q1

REPORT INFORMATION
  Report Type: Report from Study
  Country: PL (occurrence: PL)
  Receive Date: 20161129
  Receipt Date: 20170206
  Transmission Date: 20170428
  Serious: Yes (Hospitalization)
  Sender: FDA-Public Use
  Company Number: PL-TEVA-604029ISR

PATIENT
  Age: 80 Year
  Sex: Female

DRUGS (5)
  1. LONQUEX [Suspect]
     Active Substance: LIPEGFILGRASTIM
     Indication: FEBRILE NEUTROPENIA
     Dosage: 6 MILLIGRAM DAILY; DOSING: ONCE; LAST ADMINISTRATION DATE BEFORE AE OCCURENCE:14SEP2015
     Route: 058
     Dates: start: 20150914, end: 20150914
  2. CYCLOPHOSPHAMIDE. [Suspect]
     Active Substance: CYCLOPHOSPHAMIDE
     Indication: CHEMOTHERAPY
     Dosage: 772 MILLIGRAM DAILY; DOSING: ONCE; LAST ADMINISTRATION DATE BEFORE AE OCCURENCE:11SEP2015
     Route: 042
     Dates: start: 20150911, end: 20150911
  3. VINCRISTINE [Suspect]
     Active Substance: VINCRISTINE
     Indication: CHEMOTHERAPY
     Dosage: 2 MILLIGRAM DAILY; DOSING: ONCE; LAST ADMINISTRATION DATE BEFORE AE OCCURENCE:11SEP2015
     Route: 042
     Dates: start: 20150911, end: 20150911
  4. DOXORUBICIN [Suspect]
     Active Substance: DOXORUBICIN
     Indication: CHEMOTHERAPY
     Dosage: 39 MILLIGRAM DAILY; DOSING: ONCE; LAST ADMINISTRATION DATE BEFORE AE OCCURENCE:11SEP2015
     Route: 042
     Dates: start: 20150911, end: 20150911
  5. PREDNISONE. [Suspect]
     Active Substance: PREDNISONE
     Indication: CHEMOTHERAPY
     Dosage: 100 MILLIGRAM DAILY; DOSING: DAILY; LAST ADMINISTRATION DATE BEFORE AE OCCURENCE:15SEP2015
     Route: 048
     Dates: start: 20150911, end: 20150915

REACTIONS (1)
  - Pneumonia [Recovered/Resolved]

NARRATIVE: CASE EVENT DATE: 20150928
